FAERS Safety Report 10663942 (Version 1)
Quarter: 2014Q4

REPORT INFORMATION
  Report Type: Spontaneous
  Country: US (occurrence: None)
  Receive Date: 20141218
  Receipt Date: 20141218
  Transmission Date: 20150529
  Serious: No
  Sender: FDA-Public Use
  Company Number: None

PATIENT
  Age: 68 Year
  Sex: Male
  Weight: 136.08 kg

DRUGS (1)
  1. VALTREX [Suspect]
     Active Substance: VALACYCLOVIR HYDROCHLORIDE
     Indication: HERPES ZOSTER
     Dosage: 1 TAB 3 X DAILY, THREE TIMES DAILY, TAKEN BY MOUTH
     Route: 048
     Dates: start: 20141205, end: 20141213

REACTIONS (4)
  - Rash generalised [None]
  - Feeling abnormal [None]
  - Arthralgia [None]
  - Burning sensation [None]

NARRATIVE: CASE EVENT DATE: 20141213
